FAERS Safety Report 7592072-0 (Version None)
Quarter: 2011Q2

REPORT INFORMATION
  Report Type: 
  Country: None (occurrence: None)
  Receive Date: 20110628
  Receipt Date: 20110610
  Transmission Date: 20111010
  Serious: Yes (Hospitalization, Other)
  Sender: FDA-Public Use
  Company Number: 2011SP022932

PATIENT
  Age: 57 Year
  Sex: Male
  Weight: 104.3273 kg

DRUGS (8)
  1. MIRALAX [Suspect]
     Indication: CONSTIPATION
     Dosage: QD;PO
     Route: 048
     Dates: start: 20110108, end: 20110116
  2. SIMVASTATIN [Concomitant]
  3. PROBENECID /00146101/ [Concomitant]
  4. MULTIVITAMIN /00097801/ [Concomitant]
  5. NIACIN [Suspect]
     Indication: PRODUCT USED FOR UNKNOWN INDICATION
     Dosage: 1000 MG;QD;PO
     Route: 048
  6. ASPIRIN [Concomitant]
  7. LACTULOSE [Suspect]
     Indication: PRODUCT USED FOR UNKNOWN INDICATION
     Dosage: 20 GM;QD;PO
     Route: 048
  8. FISH OIL [Concomitant]

REACTIONS (6)
  - HYPOTENSION [None]
  - DIZZINESS [None]
  - HYPERSENSITIVITY [None]
  - DYSPNOEA [None]
  - POISONING [None]
  - FEELING ABNORMAL [None]
